FAERS Safety Report 10766037 (Version 2)
Quarter: 2015Q1

REPORT INFORMATION
  Report Type: Spontaneous
  Country: US (occurrence: US)
  Receive Date: 20150205
  Receipt Date: 20150209
  Transmission Date: 20150721
  Serious: Yes (Other)
  Sender: FDA-Public Use
  Company Number: US-PFIZER INC-2015045046

PATIENT
  Age: 5 Year
  Sex: Male

DRUGS (14)
  1. ROBINUL [Suspect]
     Active Substance: GLYCOPYRROLATE
     Dosage: 2 ML, 3X/DAY (1 MG/5ML SOLUTION)
  2. ARTANE [Suspect]
     Active Substance: TRIHEXYPHENIDYL HYDROCHLORIDE
     Dosage: 7.5 ML, 3X/DAY
  3. NEURONTIN [Suspect]
     Active Substance: GABAPENTIN
     Dosage: 4 ML, 3X/DAY (250 MG/5 ML SOLUTION)
  4. CLONAZEPAM. [Suspect]
     Active Substance: CLONAZEPAM
     Dosage: 1 ML, 3X/DAY (0.1 MG/ ML SOLUTION; 1 ML T.I.D)
  5. TRAZODONE [Suspect]
     Active Substance: TRAZODONE HYDROCHLORIDE
     Dosage: 50 MG, 1X/DAY (50 MG TABLET; 1 TABLET Q.H.S)
  6. KEPPRA [Suspect]
     Active Substance: LEVETIRACETAM
     Dosage: 6.5 ML, 2X/DAY (100 MG/ML SOLUTION)
  7. LEUCOVORIN CALCIUM. [Suspect]
     Active Substance: LEUCOVORIN CALCIUM
     Dosage: 1 DF, 3X/DAY
  8. CARAFATE [Suspect]
     Active Substance: SUCRALFATE
     Dosage: PRN (1 GM/10 ML SUSPENSION)
  9. ERYPED [Suspect]
     Active Substance: ERYTHROMYCIN ETHYLSUCCINATE
     Dosage: 1.5 ML, 2X/DAY (400 MG/5 ML SUSPENSION)
  10. BACLOFEN. [Suspect]
     Active Substance: BACLOFEN
     Dosage: 10 MG TABLET; 1.5 TABLETS T.ID
  11. ONDANSETRON [Suspect]
     Active Substance: ONDANSETRON
     Dosage: 4 MG/5 ML SOLUTION, PRN
  12. OMEPRAZOLE. [Suspect]
     Active Substance: OMEPRAZOLE
     Dosage: 2 MG/ML SUSPENSION; 7 MLS OM
  13. CLONIDINE HYDROCHLORIDE. [Suspect]
     Active Substance: CLONIDINE HYDROCHLORIDE
     Dosage: 0.1 MG, 1X/DAY (0.1 MG TABLET; 1 TABLET Q.H.S)
  14. ONFI [Suspect]
     Active Substance: CLOBAZAM
     Dosage: 3 ML H. S (0.1 MG/ ML SOLUTION)

REACTIONS (13)
  - Neuropathy peripheral [Unknown]
  - Condition aggravated [Unknown]
  - Learning disorder [Unknown]
  - Sensory loss [Unknown]
  - Leukodystrophy [Unknown]
  - Urine output increased [Unknown]
  - Blood sodium increased [Unknown]
  - Weight decreased [Unknown]
  - Blindness cortical [Unknown]
  - Seizure [Unknown]
  - Deafness [Unknown]
  - Disease progression [Unknown]
  - Blood osmolarity increased [Unknown]
